FAERS Safety Report 7540432-6 (Version None)
Quarter: 2011Q2

REPORT INFORMATION
  Report Type: 
  Country: None (occurrence: None)
  Receive Date: 20110610
  Receipt Date: 20110602
  Transmission Date: 20111010
  Serious: Yes (Other)
  Sender: FDA-Public Use
  Company Number: CA-ASTRAZENECA-2011SE32772

PATIENT
  Age: 73 Year
  Sex: Female

DRUGS (5)
  1. NEXIUM [Suspect]
     Route: 048
     Dates: start: 20110411
  2. LEVOTHYROXINE SODIUM [Concomitant]
  3. ATORVASTATIN [Concomitant]
  4. LORAZEPAM [Concomitant]
  5. VENLAFAXINE HYDROCHLORIDE (EFFEXOR XR) [Concomitant]

REACTIONS (1)
  - PAIN IN EXTREMITY [None]
